FAERS Safety Report 9382079 (Version 2)
Quarter: 2013Q3

REPORT INFORMATION
  Report Type: Spontaneous
  Country: JP (occurrence: JP)
  Receive Date: 20130703
  Receipt Date: 20130725
  Transmission Date: 20140515
  Serious: Yes (Other)
  Sender: FDA-Public Use
  Company Number: JP-AMGEN-JPNSP2013045823

PATIENT
  Age: 60 Year
  Sex: Male

DRUGS (19)
  1. ARANESP [Suspect]
     Indication: NEPHROGENIC ANAEMIA
     Dosage: 120 MUG, 1X/WEEK
     Route: 040
     Dates: start: 20130410
  2. ARANESP [Suspect]
     Dosage: 180 MUG, 1X/WEEK
     Route: 040
     Dates: start: 20130501
  3. PREDONINE                          /00016201/ [Concomitant]
     Dosage: 1 DF, QD
     Route: 048
  4. THYRADIN S [Concomitant]
     Dosage: 1.5 DF, QD
     Route: 048
  5. ROCALTROL [Concomitant]
     Dosage: 1 DF, QD
     Route: 048
  6. TAKEPRON [Concomitant]
     Dosage: 1 DF, QD
     Route: 048
  7. CLARITH [Concomitant]
     Dosage: 1 DF, QD
     Route: 048
  8. ALDACTONE A [Concomitant]
     Dosage: 1 DF, QD
     Route: 048
  9. LYRICA [Concomitant]
     Dosage: 2 DF, QD
     Route: 048
  10. BAKTAR [Concomitant]
     Dosage: 1 DF, QD
     Route: 048
  11. DIOVAN [Concomitant]
     Dosage: 1 DF, QD
     Route: 048
  12. TRYPTANOL [Concomitant]
     Dosage: 0.5 DF, BID
     Route: 048
  13. MIYA BM [Concomitant]
     Dosage: 1 G, TID
     Route: 048
  14. GASMOTIN [Concomitant]
     Dosage: 1 DF, TID
     Route: 048
  15. MUCODYNE [Concomitant]
     Dosage: 1 DF, TID
     Route: 048
  16. ARTIST [Concomitant]
     Dosage: 1 DF, BID
     Route: 048
  17. ARTIST [Concomitant]
     Dosage: 1 DF, QD
     Route: 048
  18. NOVORAPID [Concomitant]
     Dosage: UNK
     Route: 058
  19. VANCOMYCIN HYDROCHLORIDE [Concomitant]
     Dosage: UNK
     Route: 048
     Dates: start: 20130611

REACTIONS (2)
  - Aplasia pure red cell [Unknown]
  - Clostridium difficile infection [Unknown]
